FAERS Safety Report 6175361-6 (Version None)
Quarter: 2009Q2

REPORT INFORMATION
  Report Type: 
  Country: None (occurrence: None)
  Receive Date: 20090429
  Receipt Date: 20090417
  Transmission Date: 20091009
  Serious: Yes (Hospitalization)
  Sender: FDA-Public Use
  Company Number: 2009US000853

PATIENT
  Age: 39 Year
  Sex: Female

DRUGS (1)
  1. PROGRAF [Suspect]
     Indication: HEART TRANSPLANT
     Dosage: 7 MG, UID/QD

REACTIONS (4)
  - HEART TRANSPLANT REJECTION [None]
  - HYPERTENSION [None]
  - PREGNANCY [None]
  - TREATMENT NONCOMPLIANCE [None]
